FAERS Safety Report 9492388 (Version 1)
Quarter: 2013Q3

REPORT INFORMATION
  Report Type: Spontaneous
  Country: IT (occurrence: IT)
  Receive Date: 20130830
  Receipt Date: 20130830
  Transmission Date: 20140515
  Serious: Yes (Life-Threatening)
  Sender: FDA-Public Use
  Company Number: IT-ACTAVIS-2013-15708

PATIENT
  Age: 60 Year
  Sex: Male

DRUGS (1)
  1. DOCETAXEL (UNKNOWN) [Suspect]
     Indication: NEOPLASM PROSTATE
     Dosage: 130 MG, 1 TRIMESTER(S)
     Route: 042
     Dates: start: 20130617, end: 20130617

REACTIONS (4)
  - Dyspnoea [Recovered/Resolved]
  - Loss of consciousness [Recovered/Resolved]
  - Cyanosis [Recovered/Resolved]
  - Infusion related reaction [Recovered/Resolved]
